FAERS Safety Report 12459998 (Version 3)
Quarter: 2019Q4

REPORT INFORMATION
  Report Type: Spontaneous
  Country: US (occurrence: US)
  Receive Date: 20160613
  Receipt Date: 20191024
  Transmission Date: 20200122
  Serious: No
  Sender: FDA-Public Use
  Company Number: US-PFIZER INC-2013352965

PATIENT
  Age: 62 Year
  Sex: Female
  Weight: 61 kg

DRUGS (4)
  1. PREMARIN [Suspect]
     Active Substance: ESTROGENS, CONJUGATED
     Indication: ADDISON^S DISEASE
     Dosage: UNK, 2X/DAY
     Dates: start: 20160517
  2. PREMARIN [Suspect]
     Active Substance: ESTROGENS, CONJUGATED
     Indication: ADRENAL INSUFFICIENCY
  3. PREMARIN [Suspect]
     Active Substance: ESTROGENS, CONJUGATED
     Indication: BLOOD OESTROGEN DECREASED
  4. PREMARIN [Suspect]
     Active Substance: ESTROGENS, CONJUGATED
     Indication: HORMONE LEVEL ABNORMAL

REACTIONS (5)
  - Off label use [Unknown]
  - Nausea [Unknown]
  - Nerve compression [Unknown]
  - Product use in unapproved indication [Unknown]
  - Weight increased [Unknown]
